FAERS Safety Report 12396788 (Version 1)
Quarter: 2016Q2

REPORT INFORMATION
  Report Type: Spontaneous
  Country: US (occurrence: None)
  Receive Date: 20160523
  Receipt Date: 20160523
  Transmission Date: 20160815
  Serious: No
  Sender: FDA-Public Use
  Company Number: None

PATIENT
  Age: 39 Year
  Sex: Female
  Weight: 90.72 kg

DRUGS (2)
  1. PROBIOTIC [Concomitant]
     Active Substance: PROBIOTICS NOS
  2. MIRENA [Suspect]
     Active Substance: LEVONORGESTREL
     Dates: start: 20151120, end: 20160315

REACTIONS (16)
  - Acne [None]
  - Abdominal distension [None]
  - Fatigue [None]
  - Arthritis [None]
  - Muscle spasms [None]
  - Headache [None]
  - Alopecia [None]
  - Weight increased [None]
  - Haemorrhage [None]
  - Constipation [None]
  - Hydrometra [None]
  - Migraine [None]
  - Cyst [None]
  - Lacrimation increased [None]
  - Abdominal tenderness [None]
  - Device dislocation [None]

NARRATIVE: CASE EVENT DATE: 20160311
